FAERS Safety Report 19077133 (Version 1)
Quarter: 2021Q1

REPORT INFORMATION
  Report Type: Spontaneous
  Country: EG (occurrence: EG)
  Receive Date: 20210331
  Receipt Date: 20210331
  Transmission Date: 20210420
  Serious: Yes (Death)
  Sender: FDA-Public Use
  Company Number: EG-ABBVIE-21K-048-3839448-00

PATIENT
  Age: 63 Year
  Sex: Male

DRUGS (8)
  1. AVEROZOLID [Concomitant]
     Active Substance: LINEZOLID
     Indication: COVID-19 TREATMENT
     Dosage: 600 MG/ONCE
     Route: 048
  2. PARAMOL [Concomitant]
     Indication: COVID-19 TREATMENT
     Route: 048
  3. DEXAMETHAZONE [Concomitant]
     Active Substance: DEXAMETHASONE
     Indication: COVID-19 TREATMENT
  4. VITAMIN C [Concomitant]
     Active Substance: ASCORBIC ACID
     Indication: COVID-19 TREATMENT
     Route: 048
  5. CEFTRIAXONE. [Concomitant]
     Active Substance: CEFTRIAXONE
     Indication: COVID-19 TREATMENT
     Dosage: 1 GM VIAL/12HR
  6. CLEXANE [Concomitant]
     Active Substance: ENOXAPARIN SODIUM
     Indication: COVID-19 TREATMENT
     Dosage: 40 IU /12 HR
     Route: 042
  7. ZINC. [Concomitant]
     Active Substance: ZINC
     Indication: COVID-19 TREATMENT
     Route: 048
  8. ALUVIA 200/50 [Suspect]
     Active Substance: LOPINAVIR\RITONAVIR
     Indication: COVID-19 TREATMENT
     Dosage: 2 TABLETS /12 HR
     Route: 048
     Dates: start: 20210124, end: 20210127

REACTIONS (4)
  - Disease complication [Fatal]
  - Tongue eruption [Fatal]
  - Dysphagia [Fatal]
  - Oral mucosal eruption [Fatal]

NARRATIVE: CASE EVENT DATE: 202101
